FAERS Safety Report 19618285 (Version 4)
Quarter: 2023Q2

REPORT INFORMATION
  Report Type: Spontaneous
  Country: US (occurrence: US)
  Receive Date: 20210727
  Receipt Date: 20230601
  Transmission Date: 20230721
  Serious: No
  Sender: FDA-Public Use
  Company Number: US-PFIZER INC-2021849732

PATIENT
  Age: 53 Year
  Sex: Male
  Weight: 125.8 kg

DRUGS (2)
  1. BENEFIX [Suspect]
     Active Substance: COAGULATION FACTOR IX RECOMBINANT HUMAN\ISOPROPYL ALCOHOL
     Indication: Haemorrhage
     Dosage: 60UNITS/KG (7548 UNITS/TOTAL DOSE +/-5%) TO BE INFUSED PRN OR AS DIRECTED BY PHYSICIAN
     Route: 042
  2. BENEFIX [Suspect]
     Active Substance: COAGULATION FACTOR IX RECOMBINANT HUMAN\ISOPROPYL ALCOHOL
     Dosage: 120 U/KG (15096 UNITS) AS NEEDED
     Route: 042

REACTIONS (1)
  - Weight abnormal [Unknown]
